FAERS Safety Report 12702389 (Version 2)
Quarter: 2016Q4

REPORT INFORMATION
  Report Type: Report from Study
  Country: NL (occurrence: NL)
  Receive Date: 20160831
  Receipt Date: 20161010
  Transmission Date: 20170207
  Serious: Yes (Hospitalization, Other)
  Sender: FDA-Public Use
  Company Number: NL-AMGEN-NLDSL2016111798

PATIENT
  Age: 50 Year
  Sex: Female

DRUGS (3)
  1. XGEVA [Suspect]
     Active Substance: DENOSUMAB
     Dosage: UNK
     Route: 058
  2. XGEVA [Suspect]
     Active Substance: DENOSUMAB
     Indication: PROPHYLAXIS
     Dosage: 120 MG (1.7 ML), Q4WK
     Route: 058
     Dates: start: 201603, end: 20160822
  3. XGEVA [Suspect]
     Active Substance: DENOSUMAB
     Dosage: UNK
     Route: 058

REACTIONS (5)
  - Deep vein thrombosis [Unknown]
  - Lung neoplasm malignant [Not Recovered/Not Resolved]
  - Metastases to meninges [Unknown]
  - Tooth fracture [Recovering/Resolving]
  - Large intestine perforation [Unknown]

NARRATIVE: CASE EVENT DATE: 201604
